FAERS Safety Report 4557834-2 (Version None)
Quarter: 2005Q1

REPORT INFORMATION
  Report Type: 
  Country: None (occurrence: None)
  Receive Date: 20050103
  Receipt Date: 20041011
  Transmission Date: 20050727
  Serious: Yes (Other)
  Sender: FDA-Public Use
  Company Number: 2004UW19557

PATIENT
  Sex: Female

DRUGS (5)
  1. CRESTOR [Suspect]
     Dates: start: 20040731, end: 20040816
  2. BLOOD THINNERS [Concomitant]
  3. SYNTHROID [Concomitant]
  4. GLUCOTROL [Concomitant]
  5. GLUCOPHAGE [Concomitant]

REACTIONS (4)
  - BLOOD GLUCOSE INCREASED [None]
  - FEELING ABNORMAL [None]
  - RETCHING [None]
  - THROAT TIGHTNESS [None]
